FAERS Safety Report 7564392-7 (Version None)
Quarter: 2011Q2

REPORT INFORMATION
  Report Type: 
  Country: None (occurrence: None)
  Receive Date: 20110622
  Receipt Date: 20110610
  Transmission Date: 20111010
  Serious: Yes (Hospitalization, Disabling)
  Sender: FDA-Public Use
  Company Number: PHHO2011US10116

PATIENT
  Sex: Female
  Weight: 50 kg

DRUGS (3)
  1. EXELON [Suspect]
     Indication: DEMENTIA ALZHEIMER'S TYPE
     Dosage: CODE NOT BROKEN
     Route: 062
     Dates: start: 20110402, end: 20110606
  2. EXELON [Suspect]
     Indication: DEMENTIA ALZHEIMER'S TYPE
     Dosage: CODE NOT BROKEN
     Route: 062
     Dates: start: 20110402, end: 20110606
  3. BLINDED NO TREATMENT RECEIVED [Suspect]
     Indication: DEMENTIA ALZHEIMER'S TYPE
     Dosage: CODE NOT BROKEN
     Route: 062
     Dates: start: 20110402, end: 20110606

REACTIONS (1)
  - HIP FRACTURE [None]
